FAERS Safety Report 5716663-4 (Version None)
Quarter: 2008Q2

REPORT INFORMATION
  Report Type: 
  Country: None (occurrence: None)
  Receive Date: 20080424
  Receipt Date: 20070402
  Transmission Date: 20081010
  Serious: No
  Sender: FDA-Public Use
  Company Number: US-BAYER-200710270BWH

PATIENT
  Age: 62 Year
  Sex: Male

DRUGS (8)
  1. LEVITRA [Suspect]
     Indication: DRUG USE FOR UNKNOWN INDICATION
     Dosage: TOTAL DAILY DOSE: 10 MG  UNIT DOSE: 10 MG
     Route: 048
     Dates: start: 20070124
  2. CELEBREX [Concomitant]
     Route: 048
  3. NEXIUM [Concomitant]
     Route: 048
  4. ELAVIL [Concomitant]
     Route: 048
  5. VITAMIN B [Concomitant]
  6. ASCORBIC ACID [Concomitant]
  7. VITAMIN E [Concomitant]
  8. FISH OIL [Concomitant]

REACTIONS (1)
  - ERECTILE DYSFUNCTION [None]
